FAERS Safety Report 7705501-6 (Version None)
Quarter: 2011Q3

REPORT INFORMATION
  Report Type: 
  Country: None (occurrence: None)
  Receive Date: 20110818
  Receipt Date: 20110804
  Transmission Date: 20111222
  Serious: Yes (Other)
  Sender: FDA-Public Use
  Company Number: 2011MA011767

PATIENT
  Age: 59 Year
  Sex: Female

DRUGS (16)
  1. CODEINE SULFATE [Suspect]
  2. DIAZEPAM [Concomitant]
  3. TEMAZEPAM [Concomitant]
  4. ADCAL [Concomitant]
  5. GABAPENTIN [Concomitant]
  6. CARBOCISTINE [Concomitant]
  7. VENTOLIN HFA [Concomitant]
  8. LANSOPRAZOLE [Concomitant]
  9. ALDENDRONIC ACID [Concomitant]
  10. CLARITHROMYCIN [Concomitant]
  11. DICLOFENAC SODIUM [Concomitant]
  12. FLUCONAZOLE [Concomitant]
  13. ESTRADERM [Concomitant]
  14. SIMAVASTATIN [Concomitant]
  15. ANUSOL [Concomitant]
  16. FEVERALL [Suspect]

REACTIONS (2)
  - RASH [None]
  - VOMITING [None]
